FAERS Safety Report 9881007 (Version 1)
Quarter: 2014Q1

REPORT INFORMATION
  Report Type: Spontaneous
  Country: US (occurrence: US)
  Receive Date: 20140207
  Receipt Date: 20140207
  Transmission Date: 20141002
  Serious: Yes (Hospitalization)
  Sender: FDA-Public Use
  Company Number: US-JNJFOC-20140118007

PATIENT
  Age: 35 Year
  Sex: Male
  Weight: 90.72 kg

DRUGS (32)
  1. RISPERDAL [Suspect]
     Indication: BIPOLAR DISORDER
     Route: 048
     Dates: start: 201007, end: 2010
  2. RISPERDAL [Suspect]
     Indication: BIPOLAR DISORDER
     Route: 048
     Dates: start: 2011, end: 2011
  3. RISPERDAL [Suspect]
     Indication: SCHIZOAFFECTIVE DISORDER
     Route: 048
     Dates: start: 2011, end: 2011
  4. RISPERDAL [Suspect]
     Indication: SCHIZOAFFECTIVE DISORDER
     Route: 048
     Dates: start: 201007, end: 2010
  5. RISPERDAL CONSTA [Suspect]
     Indication: BIPOLAR DISORDER
     Route: 030
     Dates: start: 2011, end: 2011
  6. RISPERDAL CONSTA [Suspect]
     Indication: BIPOLAR DISORDER
     Route: 030
     Dates: start: 201007, end: 201007
  7. RISPERDAL CONSTA [Suspect]
     Indication: SCHIZOAFFECTIVE DISORDER
     Route: 030
     Dates: start: 201007, end: 201007
  8. RISPERDAL CONSTA [Suspect]
     Indication: SCHIZOAFFECTIVE DISORDER
     Route: 030
     Dates: start: 2011, end: 2011
  9. INVEGA SUSTENNA [Suspect]
     Indication: BIPOLAR DISORDER
     Route: 065
     Dates: start: 201007, end: 2010
  10. INVEGA SUSTENNA [Suspect]
     Indication: BIPOLAR DISORDER
     Route: 065
     Dates: start: 2011, end: 2011
  11. INVEGA SUSTENNA [Suspect]
     Indication: SCHIZOAFFECTIVE DISORDER
     Route: 065
     Dates: start: 201007, end: 2010
  12. INVEGA SUSTENNA [Suspect]
     Indication: SCHIZOAFFECTIVE DISORDER
     Route: 065
     Dates: start: 2011, end: 2011
  13. INVEGA [Suspect]
     Indication: BIPOLAR DISORDER
     Route: 065
     Dates: start: 201007, end: 2010
  14. INVEGA [Suspect]
     Indication: BIPOLAR DISORDER
     Route: 065
     Dates: start: 2011, end: 2011
  15. INVEGA [Suspect]
     Indication: SCHIZOAFFECTIVE DISORDER
     Route: 065
     Dates: start: 201007, end: 2010
  16. INVEGA [Suspect]
     Indication: SCHIZOAFFECTIVE DISORDER
     Route: 065
     Dates: start: 2011, end: 2011
  17. HALDOL [Suspect]
     Indication: BIPOLAR DISORDER
     Route: 065
     Dates: start: 2011, end: 2011
  18. HALDOL [Suspect]
     Indication: SCHIZOAFFECTIVE DISORDER
     Route: 065
     Dates: start: 2011, end: 2011
  19. HALDOL DECANOATE [Suspect]
     Indication: BIPOLAR DISORDER
     Route: 065
     Dates: start: 2011, end: 2011
  20. HALDOL DECANOATE [Suspect]
     Indication: BIPOLAR DISORDER
     Route: 065
     Dates: start: 2013, end: 2013
  21. HALDOL DECANOATE [Suspect]
     Indication: SCHIZOAFFECTIVE DISORDER
     Route: 065
     Dates: start: 2011, end: 2011
  22. HALDOL DECANOATE [Suspect]
     Indication: SCHIZOAFFECTIVE DISORDER
     Route: 065
     Dates: start: 2013, end: 2013
  23. SEROQUEL [Suspect]
     Indication: BIPOLAR DISORDER
     Route: 065
     Dates: start: 201007, end: 201007
  24. SEROQUEL [Suspect]
     Indication: SCHIZOAFFECTIVE DISORDER
     Route: 065
     Dates: start: 201007, end: 201007
  25. GEODON [Suspect]
     Indication: BIPOLAR DISORDER
     Route: 065
     Dates: start: 201007, end: 2010
  26. GEODON [Suspect]
     Indication: SCHIZOAFFECTIVE DISORDER
     Route: 065
     Dates: start: 201007, end: 2010
  27. FENOFIBRATE [Concomitant]
     Indication: BLOOD TRIGLYCERIDES
     Route: 048
     Dates: start: 2010
  28. OXCARBAZEPINE [Concomitant]
     Indication: BIPOLAR DISORDER
     Route: 048
  29. OXCARBAZEPINE [Concomitant]
     Indication: SCHIZOAFFECTIVE DISORDER
     Route: 048
  30. EPITOL [Concomitant]
     Indication: BIPOLAR DISORDER
     Route: 048
     Dates: start: 2010
  31. EPITOL [Concomitant]
     Indication: SCHIZOAFFECTIVE DISORDER
     Route: 048
     Dates: start: 2010
  32. CLONAZEPAM [Concomitant]
     Indication: ANXIETY
     Route: 048

REACTIONS (7)
  - Psychotic disorder [Not Recovered/Not Resolved]
  - Diabetes mellitus [Not Recovered/Not Resolved]
  - Mania [Recovered/Resolved]
  - Aggression [Unknown]
  - Delusion [Not Recovered/Not Resolved]
  - Gynaecomastia [Not Recovered/Not Resolved]
  - Blood triglycerides increased [Not Recovered/Not Resolved]
